FAERS Safety Report 15279861 (Version 1)
Quarter: 2018Q4

REPORT INFORMATION
  Report Type: Spontaneous
  Country: DE (occurrence: DE)
  Receive Date: 20180815
  Receipt Date: 20180815
  Transmission Date: 20190204
  Serious: Yes (Hospitalization)
  Sender: FDA-Public Use
  Company Number: DE-PFIZER INC-2018324266

PATIENT
  Age: 29 Year
  Sex: Female

DRUGS (12)
  1. KEPPRA [Suspect]
     Active Substance: LEVETIRACETAM
     Dosage: 500 MG, 2X/DAY
     Dates: end: 201612
  2. FYCOMPA [Concomitant]
     Active Substance: PERAMPANEL
  3. NOVALGIN (METAMIZOLE SODIUM) [Concomitant]
     Active Substance: METAMIZOLE SODIUM
     Indication: PAIN
  4. TAVOR (LORAZEPAM) [Suspect]
     Active Substance: LORAZEPAM
     Dosage: 2 MG, UNK
  5. TAVOR (LORAZEPAM) [Suspect]
     Active Substance: LORAZEPAM
     Dosage: 2.5 MG, UNK
  6. RIOPAN /00141701/ [Concomitant]
     Active Substance: MAGALDRATE
     Indication: ABDOMINAL PAIN UPPER
     Dosage: UNK
  7. LEVETIRACETAM. [Suspect]
     Active Substance: LEVETIRACETAM
     Dosage: UNK
  8. TAVOR (LORAZEPAM) [Suspect]
     Active Substance: LORAZEPAM
     Dosage: UNK
  9. KEPPRA [Suspect]
     Active Substance: LEVETIRACETAM
     Dosage: 1500 MG, 2X/DAY
  10. KEPPRA [Suspect]
     Active Substance: LEVETIRACETAM
     Dosage: 1000 MG, 2X/DAY
  11. KEPPRA [Suspect]
     Active Substance: LEVETIRACETAM
     Dosage: 250 MG, UNK
  12. VIMPAT [Suspect]
     Active Substance: LACOSAMIDE
     Dosage: 100 MG, 2X/DAY

REACTIONS (15)
  - Weight decreased [Unknown]
  - Disturbance in attention [Unknown]
  - Gait disturbance [Unknown]
  - Intentional product misuse [Unknown]
  - Gastritis [Unknown]
  - Loss of consciousness [Unknown]
  - Tremor [Recovered/Resolved]
  - Memory impairment [Unknown]
  - Headache [Unknown]
  - Drug intolerance [Unknown]
  - Dizziness [Unknown]
  - Decreased appetite [Unknown]
  - Fatigue [Unknown]
  - Muscle twitching [Recovered/Resolved]
  - Learning disorder [Unknown]

NARRATIVE: CASE EVENT DATE: 2016
